FAERS Safety Report 22219587 (Version 1)
Quarter: 2023Q2

REPORT INFORMATION
  Report Type: Spontaneous
  Country: US (occurrence: None)
  Receive Date: 20230414
  Receipt Date: 20230414
  Transmission Date: 20230721
  Serious: Yes (Death)
  Sender: FDA-Public Use
  Company Number: None

PATIENT
  Age: 83 Year
  Sex: Female

DRUGS (9)
  1. OFEV [Suspect]
     Active Substance: NINTEDANIB
     Indication: Interstitial lung disease
     Dosage: FREQUENCY : TWICE A DAY;?
     Route: 048
     Dates: start: 20151007, end: 20230210
  2. ATORVASTATIN [Concomitant]
  3. MYCOPHENOLIC ACID [Concomitant]
     Active Substance: MYCOPHENOLIC ACID
  4. LISINOPRIL [Concomitant]
  5. FLUOXETINE [Concomitant]
  6. ALENDRONATE [Concomitant]
     Active Substance: ALENDRONATE SODIUM
  7. aspirin [Concomitant]
  8. VITAMIN D3 [Concomitant]
  9. diclofenac top gel [Concomitant]

REACTIONS (2)
  - Interstitial lung disease [None]
  - Hospice care [None]

NARRATIVE: CASE EVENT DATE: 20230210
